FAERS Safety Report 15538070 (Version 1)
Quarter: 2018Q4

REPORT INFORMATION
  Report Type: Spontaneous
  Country: JP (occurrence: JP)
  Receive Date: 20181022
  Receipt Date: 20181022
  Transmission Date: 20190205
  Serious: Yes (Other)
  Sender: FDA-Public Use
  Company Number: JP-PFIZER INC-2018426204

PATIENT
  Age: 50 Year
  Sex: Female

DRUGS (2)
  1. DALACIN S 300MG [Suspect]
     Active Substance: CLINDAMYCIN PHOSPHATE
     Dosage: 300 MG (1 VIAL), UNK
     Dates: start: 201608, end: 201608
  2. MINOMYCIN 2% [Suspect]
     Active Substance: MINOCYCLINE HYDROCHLORIDE
     Dosage: 1 G, UNK

REACTIONS (1)
  - Tubulointerstitial nephritis [Unknown]
